FAERS Safety Report 23731598 (Version 2)
Quarter: 2024Q2

REPORT INFORMATION
  Report Type: Report from Study
  Country: US (occurrence: US)
  Receive Date: 20240411
  Receipt Date: 20240530
  Transmission Date: 20240716
  Serious: Yes (Other)
  Sender: FDA-Public Use
  Company Number: US-Merck Healthcare KGaA-9393970

PATIENT
  Age: 28 Year
  Sex: Female

DRUGS (1)
  1. MAVENCLAD [Suspect]
     Active Substance: CLADRIBINE
     Indication: Multiple sclerosis
     Dosage: YEAR ONE MONTH ONE THERAPY
     Route: 048
     Dates: start: 20230304, end: 20230308

REACTIONS (6)
  - White blood cell count decreased [Unknown]
  - Uterine infection [Recovered/Resolved]
  - Lymphocyte count decreased [Not Recovered/Not Resolved]
  - Nasopharyngitis [Unknown]
  - Biopsy uterus [Unknown]
  - Urinary tract infection [Unknown]

NARRATIVE: CASE EVENT DATE: 20231001
